FAERS Safety Report 24935818 (Version 1)
Quarter: 2025Q1

REPORT INFORMATION
  Report Type: Report from Study
  Country: US (occurrence: US)
  Receive Date: 20250206
  Receipt Date: 20250206
  Transmission Date: 20250409
  Serious: Yes (Other)
  Sender: EXELIXIS
  Company Number: US-EXELIXIS-CABO-24081187

PATIENT
  Sex: Male
  Weight: 89.796 kg

DRUGS (1)
  1. CABOMETYX [Suspect]
     Active Substance: CABOZANTINIB S-MALATE
     Indication: Renal cancer
     Dosage: 40 MG, QD
     Route: 048
     Dates: start: 20240821

REACTIONS (8)
  - Weight decreased [Unknown]
  - Nausea [Unknown]
  - Constipation [Unknown]
  - Decreased appetite [Unknown]
  - Ageusia [Unknown]
  - Anosmia [Unknown]
  - Decreased interest [Unknown]
  - Back pain [Unknown]
